FAERS Safety Report 19062284 (Version 1)
Quarter: 2021Q1

REPORT INFORMATION
  Report Type: Other
  Country: US (occurrence: US)
  Receive Date: 20210326
  Receipt Date: 20210326
  Transmission Date: 20210420
  Serious: Yes (Hospitalization, Other)
  Sender: FDA-Public Use
  Company Number: US-ROCHE-2789179

PATIENT
  Age: 32 Year
  Sex: Male
  Weight: 104.42 kg

DRUGS (9)
  1. OCREVUS [Suspect]
     Active Substance: OCRELIZUMAB
     Indication: RELAPSING-REMITTING MULTIPLE SCLEROSIS
     Route: 042
     Dates: start: 20210227, end: 20210227
  2. LOSARTAN. [Concomitant]
     Active Substance: LOSARTAN
     Indication: HYPERTENSION
     Route: 048
     Dates: start: 2020
  3. PREDNISONE. [Concomitant]
     Active Substance: PREDNISONE
  4. LAMOTRIGINE. [Concomitant]
     Active Substance: LAMOTRIGINE
     Route: 048
  5. BUPROPION. [Concomitant]
     Active Substance: BUPROPION
     Indication: DEPRESSION
     Route: 048
  6. SOLU?MEDROL [Concomitant]
     Active Substance: METHYLPREDNISOLONE SODIUM SUCCINATE
     Route: 042
     Dates: start: 20210305, end: 20210308
  7. ALPRAZOLAM. [Concomitant]
     Active Substance: ALPRAZOLAM
     Indication: ANXIETY
     Dosage: AS NEEDED FOR ANXIETY
     Route: 048
  8. BUPROPION. [Concomitant]
     Active Substance: BUPROPION
     Indication: ANXIETY
  9. BENADRYL [Concomitant]
     Active Substance: DIPHENHYDRAMINE HYDROCHLORIDE

REACTIONS (3)
  - Throat tightness [Recovered/Resolved]
  - Rash [Recovered/Resolved]
  - Multiple sclerosis relapse [Recovered/Resolved]

NARRATIVE: CASE EVENT DATE: 20210227
